FAERS Safety Report 8840969 (Version 1)
Quarter: 2012Q4

REPORT INFORMATION
  Report Type: 
  Country: ES (occurrence: ES)
  Receive Date: 20121015
  Receipt Date: 20121015
  Transmission Date: 20130627
  Serious: Yes (Other)
  Sender: FDA-Public Use
  Company Number: ES-ELI_LILLY_AND_COMPANY-ES201208000730

PATIENT
  Age: 66 Year
  Sex: Female
  Weight: 62 kg

DRUGS (2)
  1. FORSTEO [Suspect]
     Indication: OSTEOPOROSIS
     Dosage: 20 ug, qd
     Route: 058
     Dates: start: 20120709, end: 20121002
  2. EUTIROX [Concomitant]
     Indication: THYROID DISORDER
     Dosage: 8 mg, qd
     Route: 048

REACTIONS (11)
  - Thrombosis [Unknown]
  - Pain in extremity [Unknown]
  - Sensation of heaviness [Not Recovered/Not Resolved]
  - Vasodilatation [Not Recovered/Not Resolved]
  - Feeling abnormal [Unknown]
  - Pain [Unknown]
  - Myalgia [Unknown]
  - Muscle rigidity [Unknown]
  - Haematoma [Unknown]
  - Varicose vein [Unknown]
  - Fatigue [Unknown]
